FAERS Safety Report 13516006 (Version 1)
Quarter: 2017Q2

REPORT INFORMATION
  Report Type: Report from Study
  Country: US (occurrence: US)
  Receive Date: 20170505
  Receipt Date: 20170505
  Transmission Date: 20170830
  Serious: Yes (Hospitalization)
  Sender: FDA-Public Use
  Company Number: US-BIOGEN-2017BI00395821

PATIENT
  Sex: Female

DRUGS (1)
  1. TECFIDERA [Suspect]
     Active Substance: DIMETHYL FUMARATE
     Indication: MULTIPLE SCLEROSIS
     Route: 048
     Dates: start: 201601

REACTIONS (9)
  - Headache [Unknown]
  - Pyrexia [Unknown]
  - Multiple sclerosis relapse [Unknown]
  - Diarrhoea [Unknown]
  - Abdominal pain upper [Unknown]
  - Feeling abnormal [Unknown]
  - Asthenia [Unknown]
  - Influenza [Recovered/Resolved]
  - Hypoaesthesia [Unknown]
